FAERS Safety Report 7488077-0 (Version None)
Quarter: 2011Q2

REPORT INFORMATION
  Report Type: 
  Country: None (occurrence: None)
  Receive Date: 20110518
  Receipt Date: 20110513
  Transmission Date: 20111010
  Serious: Yes (Other)
  Sender: FDA-Public Use
  Company Number: US-PFIZER INC-2011103602

PATIENT

DRUGS (2)
  1. DILANTIN-125 [Suspect]
     Dosage: UNK
  2. ZITHROMAX [Interacting]
     Dosage: UNK

REACTIONS (2)
  - CONVULSION [None]
  - DRUG INTERACTION [None]
